FAERS Safety Report 23200186 (Version 4)
Quarter: 2024Q3

REPORT INFORMATION
  Report Type: Other
  Country: US (occurrence: US)
  Receive Date: 20231118
  Receipt Date: 20240815
  Transmission Date: 20241016
  Serious: No
  Sender: TRAVERE THERAPEUTICS
  Company Number: US-TRAVERE-2023TVT00668

PATIENT
  Sex: Male

DRUGS (2)
  1. FILSPARI [Suspect]
     Active Substance: SPARSENTAN
     Indication: IgA nephropathy
     Route: 048
     Dates: start: 20231022
  2. FILSPARI [Suspect]
     Active Substance: SPARSENTAN
     Route: 048

REACTIONS (7)
  - Fatigue [Recovered/Resolved]
  - Dehydration [Unknown]
  - Muscle spasms [Unknown]
  - Blood potassium increased [None]
  - Renal function test abnormal [Unknown]
  - Mydriasis [Unknown]
  - Miosis [Unknown]
